FAERS Safety Report 8649603 (Version 2)
Quarter: 2012Q4

REPORT INFORMATION
  Report Type: 
  Country: US (occurrence: US)
  Receive Date: 20120705
  Receipt Date: 20120829
  Transmission Date: 20130627
  Serious: Yes (Other)
  Sender: FDA-Public Use
  Company Number: US-BRISTOL-MYERS SQUIBB COMPANY-16712978

PATIENT
  Age: 4 Year
  Sex: Male

DRUGS (5)
  1. DIDANOSINE [Suspect]
     Indication: HIV INFECTION
     Route: 048
     Dates: start: 19971202, end: 20070521
  2. ABACAVIR [Concomitant]
     Indication: ANTIRETROVIRAL THERAPY
  3. EFAVIRENZ [Concomitant]
     Indication: ANTIRETROVIRAL THERAPY
  4. STAVUDINE [Concomitant]
     Indication: ANTIRETROVIRAL THERAPY
  5. PRAVACHOL [Concomitant]

REACTIONS (1)
  - Hepatic cirrhosis [Unknown]
